FAERS Safety Report 5135722-0 (Version None)
Quarter: 2006Q4

REPORT INFORMATION
  Report Type: 
  Country: None (occurrence: None)
  Receive Date: 20061020
  Receipt Date: 20061010
  Transmission Date: 20070319
  Serious: Yes (Hospitalization, Other)
  Sender: FDA-Public Use
  Company Number: 2006125246

PATIENT
  Age: 81 Year
  Sex: Male
  Weight: 102.5129 kg

DRUGS (7)
  1. LIPITOR [Suspect]
     Indication: BLOOD CHOLESTEROL
     Dosage: 20 MG (10 MG,2 IN 1 D)
     Dates: start: 20060101, end: 20060101
  2. PREDNISONE TAB [Suspect]
     Indication: MYALGIA
     Dates: start: 20060101
  3. DILTIAZEM HCL [Concomitant]
  4. GLYBURIDE [Concomitant]
  5. NPH INSULIN [Concomitant]
  6. ALL OTHER THERAPEUTIC PRODUCTS [Concomitant]
  7. PREVACID [Concomitant]

REACTIONS (8)
  - ABASIA [None]
  - CYSTITIS [None]
  - DRUG INEFFECTIVE [None]
  - KIDNEY INFECTION [None]
  - MUSCULAR WEAKNESS [None]
  - MYALGIA [None]
  - ONYCHALGIA [None]
  - PNEUMONIA [None]
